FAERS Safety Report 9901436 (Version 1)
Quarter: 2014Q1

REPORT INFORMATION
  Report Type: Spontaneous
  Country: IT (occurrence: IT)
  Receive Date: 20140217
  Receipt Date: 20140217
  Transmission Date: 20141002
  Serious: Yes (Hospitalization)
  Sender: FDA-Public Use
  Company Number: IT-NOVOPROD-399953

PATIENT
  Age: 57 Year
  Sex: Male

DRUGS (13)
  1. NOVORAPID FLEXPEN [Suspect]
     Indication: DIABETES MELLITUS
     Dosage: 29 U, QD
     Route: 065
     Dates: start: 20130101, end: 20131004
  2. LASIX /00032601/ [Suspect]
     Indication: HYPERTENSION
     Dosage: 25 MG, QD
     Route: 048
     Dates: start: 20130422, end: 20131004
  3. LANTUS [Suspect]
     Indication: DIABETES MELLITUS
     Dosage: 14 U, QD
     Dates: start: 20130101, end: 20131004
  4. PEPTAZOL                           /01159001/ [Concomitant]
  5. TAPAZOLE [Concomitant]
  6. TICLOPIDINA [Concomitant]
  7. ADALAT [Concomitant]
  8. UNIPRIL                            /00574902/ [Concomitant]
  9. KANRENOL [Concomitant]
  10. DERMATRANS                         /00003201/ [Concomitant]
  11. ESKIM [Concomitant]
  12. TORVAST [Concomitant]
  13. TAVOR                              /00273201/ [Concomitant]

REACTIONS (1)
  - Hypokalaemia [Unknown]
